FAERS Safety Report 9920873 (Version 1)
Quarter: 2014Q1

REPORT INFORMATION
  Report Type: Spontaneous
  Country: US (occurrence: US)
  Receive Date: 20140225
  Receipt Date: 20140225
  Transmission Date: 20141002
  Serious: Yes (Hospitalization, Other)
  Sender: FDA-Public Use
  Company Number: US-AMGEN-USASP2014012040

PATIENT
  Age: 48 Year
  Sex: Male

DRUGS (3)
  1. PROLIA [Suspect]
     Indication: PROPHYLAXIS
     Dosage: 60 MG, UNK
     Route: 058
  2. CALCIUM [Concomitant]
     Dosage: 1200 MG, QD
     Route: 048
  3. VITAMIN D                          /00107901/ [Concomitant]
     Dosage: 800 IU, QD
     Route: 048

REACTIONS (9)
  - Hypocalcaemia [Unknown]
  - Electrocardiogram QT prolonged [Unknown]
  - Paraesthesia [Unknown]
  - Pain [Unknown]
  - Malaise [Unknown]
  - Kyphosis [Unknown]
  - Deformity thorax [Unknown]
  - Urine potassium increased [Unknown]
  - Hypophosphataemia [Unknown]
